FAERS Safety Report 10301996 (Version 1)
Quarter: 2014Q3

REPORT INFORMATION
  Report Type: Spontaneous
  Country: US (occurrence: None)
  Receive Date: 20140709
  Receipt Date: 20140709
  Transmission Date: 20150326
  Serious: Yes (Other)
  Sender: FDA-Public Use
  Company Number: SYM-2014-22815

PATIENT
  Age: 30 Year
  Sex: Male

DRUGS (1)
  1. WELLBUTRIN XL [Suspect]
     Active Substance: BUPROPION HYDROCHLORIDE
     Indication: PRODUCT USED FOR UNKNOWN INDICATION

REACTIONS (5)
  - Gastrointestinal disorder [None]
  - Fatigue [None]
  - Malaise [None]
  - Impaired work ability [None]
  - Loss of employment [None]

NARRATIVE: CASE EVENT DATE: 2012
